FAERS Safety Report 17038541 (Version 1)
Quarter: 2019Q4

REPORT INFORMATION
  Report Type: Spontaneous
  Country: US (occurrence: US)
  Receive Date: 20191115
  Receipt Date: 20191115
  Transmission Date: 20200122
  Serious: No
  Sender: FDA-Public Use
  Company Number: US-BRISTOL-MYERS SQUIBB COMPANY-BMS-2019-108106

PATIENT
  Sex: Female
  Weight: 49.44 kg

DRUGS (1)
  1. ELIQUIS [Suspect]
     Active Substance: APIXABAN
     Indication: PRODUCT USED FOR UNKNOWN INDICATION
     Dosage: UNK UNK, BID
     Route: 048
     Dates: start: 201808

REACTIONS (5)
  - Thermal burn [Unknown]
  - Asthenia [Unknown]
  - Pain [Unknown]
  - Muscular weakness [Unknown]
  - Myalgia [Unknown]
